FAERS Safety Report 7607337-3 (Version None)
Quarter: 2011Q3

REPORT INFORMATION
  Report Type: 
  Country: None (occurrence: None)
  Receive Date: 20110713
  Receipt Date: 20110705
  Transmission Date: 20111222
  Serious: Yes (Other)
  Sender: FDA-Public Use
  Company Number: DE-ABBOTT-11P-062-0836739-00

PATIENT
  Sex: Male

DRUGS (2)
  1. GLUCOCORTICOIDS [Concomitant]
     Indication: PRODUCT USED FOR UNKNOWN INDICATION
  2. HUMIRA [Suspect]
     Indication: ACUTE FEBRILE NEUTROPHILIC DERMATOSIS
     Dates: start: 20100601, end: 20101201

REACTIONS (1)
  - OPTIC NEUROPATHY [None]
